FAERS Safety Report 16512911 (Version 2)
Quarter: 2019Q3

REPORT INFORMATION
  Report Type: Spontaneous
  Country: JP (occurrence: JP)
  Receive Date: 20190701
  Receipt Date: 20190731
  Transmission Date: 20191004
  Serious: Yes (Hospitalization)
  Sender: FDA-Public Use
  Company Number: JP-B.I. PHARMACEUTICALS,INC./RIDGEFIELD-2019-NB-002948

PATIENT
  Age: 64 Year
  Sex: Female

DRUGS (2)
  1. MITIGLINIDE CALCIUM [Suspect]
     Active Substance: MITIGLINIDE CALCIUM ANHYDROUS
     Indication: DIABETES MELLITUS
     Route: 065
  2. TRAZENTA [Suspect]
     Active Substance: LINAGLIPTIN
     Indication: DIABETES MELLITUS
     Route: 065

REACTIONS (3)
  - Hypoglycaemia [Recovering/Resolving]
  - Altered state of consciousness [Unknown]
  - Hemiplegia [Unknown]
